FAERS Safety Report 5264628-1 (Version None)
Quarter: 2007Q1

REPORT INFORMATION
  Report Type: 
  Country: None (occurrence: None)
  Receive Date: 20061122
  Receipt Date: 20060323
  Transmission Date: 20070707
  Serious: Yes (Hospitalization)
  Sender: FDA-Public Use
  Company Number: 2006MP000430

PATIENT
  Age: 67 Year
  Sex: Female
  Weight: 53 kg

DRUGS (12)
  1. GLIADEL [Suspect]
     Indication: GLIOBLASTOMA MULTIFORME
     Dosage: 61.6 MG;X1;ICER
     Route: 018
     Dates: start: 20060213, end: 20060213
  2. 06-BENZYLGUANINE (O6BG) [Suspect]
     Indication: GLIOBLASTOMA MULTIFORME
     Dosage: 30 MG/M**2;QD X5D; IV
     Route: 042
     Dates: start: 20060213, end: 20060218
  3. ZOLOFT [Concomitant]
  4. COSOPT [Concomitant]
  5. FOSAMAX [Concomitant]
  6. TYLENOL [Concomitant]
  7. CALCIUM PHOSPHATE [Concomitant]
  8. FLAXSEED OIL [Concomitant]
  9. MELATONIN [Concomitant]
  10. LYCOPENE [Concomitant]
  11. CARROT JUICE [Concomitant]
  12. LOVENOX [Concomitant]

REACTIONS (1)
  - PULMONARY EMBOLISM [None]
